FAERS Safety Report 10144772 (Version 1)
Quarter: 2014Q2

REPORT INFORMATION
  Report Type: Spontaneous
  Country: US (occurrence: US)
  Receive Date: 20140430
  Receipt Date: 20140430
  Transmission Date: 20141212
  Serious: Yes (Other)
  Sender: FDA-Public Use
  Company Number: US-SANOFI-AVENTIS-2013SA072509

PATIENT
  Age: 42 Year
  Sex: Female
  Weight: 61 kg

DRUGS (4)
  1. LOVENOX [Suspect]
     Indication: PULMONARY EMBOLISM
     Route: 058
     Dates: start: 20130629
  2. ESTRADIOL [Concomitant]
     Indication: PREGNANCY
  3. PROGESTERONE [Concomitant]
     Indication: PREGNANCY
  4. FOLIC ACID [Concomitant]

REACTIONS (2)
  - Thrombosis [Unknown]
  - Exposure during pregnancy [Unknown]
